FAERS Safety Report 4539169-7 (Version None)
Quarter: 2004Q4

REPORT INFORMATION
  Report Type: 
  Country: None (occurrence: None)
  Receive Date: 20041227
  Receipt Date: 20041227
  Transmission Date: 20050328
  Serious: No
  Sender: FDA-Public Use
  Company Number: None

PATIENT
  Sex: Female
  Weight: 58.0604 kg

DRUGS (3)
  1. REMICADE [Suspect]
     Indication: RHEUMATOID ARTHRITIS
     Dates: start: 20000201, end: 20040701
  2. METHOTREXATE [Concomitant]
  3. FORTEO [Concomitant]

REACTIONS (1)
  - B-CELL LYMPHOMA [None]
